FAERS Safety Report 9407228 (Version 1)
Quarter: 2013Q3

REPORT INFORMATION
  Report Type: Spontaneous
  Country: US (occurrence: US)
  Receive Date: 20130718
  Receipt Date: 20130718
  Transmission Date: 20140515
  Serious: Yes (Other)
  Sender: FDA-Public Use
  Company Number: US-ASTRAZENECA-2013SE51949

PATIENT
  Age: 88 Year
  Sex: Female

DRUGS (13)
  1. LISINOPRIL [Suspect]
     Indication: HYPERTENSION
     Dosage: 25 MG, TWO TIMES A DAY, GENERIC
     Route: 065
     Dates: start: 2012, end: 201302
  2. TOPROL XL [Suspect]
     Indication: CARDIAC FAILURE CONGESTIVE
     Route: 048
     Dates: start: 201302, end: 201306
  3. TOPROL XL [Suspect]
     Indication: ATRIAL FIBRILLATION
     Route: 048
     Dates: start: 201302, end: 201306
  4. LOPRESSOR [Suspect]
     Route: 065
     Dates: start: 2012
  5. LOPRESSOR [Suspect]
     Route: 048
  6. COUMADIN [Concomitant]
     Indication: THROMBOSIS
     Dates: start: 201305
  7. AMIODARONE [Concomitant]
     Indication: ATRIAL FIBRILLATION
     Dates: start: 201212
  8. LASIX [Concomitant]
     Dates: start: 201212
  9. COZAAR [Concomitant]
     Indication: HYPERTENSION
     Dates: start: 201302
  10. XANAX [Concomitant]
     Indication: SLEEP DISORDER
  11. XANAX [Concomitant]
     Indication: ANXIETY
  12. MULTIVITAMIN [Concomitant]
  13. ASPIRIN [Concomitant]

REACTIONS (18)
  - Vocal cord paralysis [Unknown]
  - Thrombosis [Unknown]
  - Neoplasm [Unknown]
  - Bradycardia [Unknown]
  - Atrioventricular block first degree [Unknown]
  - Dysphagia [Unknown]
  - Feeling hot [Unknown]
  - Aphagia [Unknown]
  - Weight decreased [Unknown]
  - Drug intolerance [Unknown]
  - Cough [Unknown]
  - Hot flush [Unknown]
  - Mucosal dryness [Unknown]
  - Dry mouth [Unknown]
  - Insomnia [Unknown]
  - Body height decreased [Unknown]
  - Fatigue [Unknown]
  - Asthenia [Unknown]
